FAERS Safety Report 8187034-9 (Version None)
Quarter: 2012Q1

REPORT INFORMATION
  Report Type: 
  Country: None (occurrence: None)
  Receive Date: 20120213
  Receipt Date: 20120111
  Transmission Date: 20120608
  Serious: Yes (Hospitalization, Other)
  Sender: FDA-Public Use
  Company Number: 1000027078

PATIENT
  Sex: Female

DRUGS (2)
  1. TRAMADOL HCL [Concomitant]
  2. SAVELLA [Suspect]
     Indication: FIBROMYALGIA
     Dosage: 100 MG (50 MG, 2 IN 1 D)

REACTIONS (2)
  - DEPRESSION [None]
  - SUICIDE ATTEMPT [None]
